FAERS Safety Report 9934150 (Version 2)
Quarter: 2014Q2

REPORT INFORMATION
  Report Type: Report from Study
  Country: US (occurrence: US)
  Receive Date: 20140228
  Receipt Date: 20140429
  Transmission Date: 20141212
  Serious: No
  Sender: FDA-Public Use
  Company Number: US-ABBVIE-14P-163-1196232-00

PATIENT
  Sex: Male
  Weight: 83.99 kg

DRUGS (6)
  1. ANDROGEL [Suspect]
     Indication: PRODUCT USED FOR UNKNOWN INDICATION
     Dosage: 3 PUMPS DAILY
     Route: 061
     Dates: start: 201301, end: 201401
  2. ANDROGEL [Suspect]
     Indication: PRODUCT USED FOR UNKNOWN INDICATION
     Dosage: 4 PUMPS DAILY
     Route: 061
     Dates: start: 2008
  3. ANDROGEL [Suspect]
     Dosage: 5 PUMPS DAILY
     Route: 061
  4. ANDROGEL [Suspect]
     Dosage: 6 PUMPS DAILY
     Route: 061
     Dates: end: 201301
  5. MULTIVITAMIN [Concomitant]
     Indication: PRODUCT USED FOR UNKNOWN INDICATION
  6. EMERGEN C [Concomitant]
     Indication: PRODUCT USED FOR UNKNOWN INDICATION

REACTIONS (2)
  - Application site dryness [Not Recovered/Not Resolved]
  - Blood testosterone abnormal [Not Recovered/Not Resolved]
